FAERS Safety Report 24455692 (Version 2)
Quarter: 2024Q4

REPORT INFORMATION
  Report Type: Report from Study
  Country: JP (occurrence: JP)
  Receive Date: 20241017
  Receipt Date: 20241018
  Transmission Date: 20250114
  Serious: No
  Sender: ROCHE
  Company Number: JP-ROCHE-3489219

PATIENT
  Age: 50 Year
  Sex: Female
  Weight: 50.0 kg

DRUGS (3)
  1. RITUXAN [Suspect]
     Active Substance: RITUXIMAB
     Indication: Prophylaxis
     Route: 041
  2. ENSPRYNG [Concomitant]
     Active Substance: SATRALIZUMAB-MWGE
     Route: 058
  3. PREDONINE [Concomitant]
     Active Substance: PREDNISOLONE

REACTIONS (2)
  - Off label use [Unknown]
  - No adverse event [Unknown]
